FAERS Safety Report 12569209 (Version 1)
Quarter: 2016Q3

REPORT INFORMATION
  Report Type: Spontaneous
  Country: BR (occurrence: BR)
  Receive Date: 20160719
  Receipt Date: 20160719
  Transmission Date: 20161109
  Serious: Yes (Other)
  Sender: FDA-Public Use
  Company Number: PHHY2016BR097428

PATIENT
  Age: 58 Year
  Sex: Female

DRUGS (1)
  1. FEMARA [Suspect]
     Active Substance: LETROZOLE
     Indication: INVASIVE DUCTAL BREAST CARCINOMA
     Route: 065
     Dates: start: 201409, end: 201601

REACTIONS (3)
  - Lymphangiosis carcinomatosa [Unknown]
  - Central nervous system lesion [Unknown]
  - Cough [Recovering/Resolving]
